FAERS Safety Report 5823726-1 (Version None)
Quarter: 2008Q3

REPORT INFORMATION
  Report Type: 
  Country: None (occurrence: None)
  Receive Date: 20080725
  Receipt Date: 20080717
  Transmission Date: 20090109
  Serious: Yes (Disabling)
  Sender: FDA-Public Use
  Company Number: US-ABBOTT-08P-163-0435758-00

PATIENT
  Sex: Female
  Weight: 71.732 kg

DRUGS (5)
  1. TRICOR [Suspect]
     Indication: BLOOD TRIGLYCERIDES INCREASED
     Dates: start: 20070401
  2. TRICOR [Suspect]
     Indication: HIGH DENSITY LIPOPROTEIN DECREASED
  3. LEVOTHYROXINE SODIUM [Concomitant]
     Indication: HYPOTHYROIDISM
     Dates: start: 20000101
  4. LEVOTHYROXINE SODIUM [Concomitant]
     Dosage: 88MCG
     Dates: start: 20020507
  5. VENLAFAXINE HYDROCHLORIDE [Concomitant]
     Indication: DRUG USE FOR UNKNOWN INDICATION
     Dates: start: 20000101

REACTIONS (45)
  - ABASIA [None]
  - ACTIVITIES OF DAILY LIVING IMPAIRED [None]
  - ADVERSE DRUG REACTION [None]
  - ANXIETY [None]
  - ARTHRALGIA [None]
  - ASTHENIA [None]
  - BLOOD PRESSURE INCREASED [None]
  - BONE PAIN [None]
  - BURNING SENSATION [None]
  - CHEST PAIN [None]
  - CHOKING [None]
  - DYSPNOEA [None]
  - EMOTIONAL DISTRESS [None]
  - FEAR [None]
  - FEAR OF DEATH [None]
  - FEELING ABNORMAL [None]
  - GAIT DISTURBANCE [None]
  - GRIP STRENGTH DECREASED [None]
  - HYPERHIDROSIS [None]
  - HYPOAESTHESIA [None]
  - ILL-DEFINED DISORDER [None]
  - IMPAIRED SELF-CARE [None]
  - IMPAIRED WORK ABILITY [None]
  - INSOMNIA [None]
  - JOINT SWELLING [None]
  - MOBILITY DECREASED [None]
  - MOVEMENT DISORDER [None]
  - MUSCLE DISORDER [None]
  - MUSCLE MASS [None]
  - MUSCLE SPASMS [None]
  - MUSCLE SWELLING [None]
  - MUSCLE TIGHTNESS [None]
  - MUSCLE TWITCHING [None]
  - MUSCULAR WEAKNESS [None]
  - MUSCULOSKELETAL PAIN [None]
  - MYALGIA [None]
  - NIGHTMARE [None]
  - OROPHARYNGEAL PAIN [None]
  - PAIN [None]
  - PAIN IN EXTREMITY [None]
  - PHYSICAL DISABILITY [None]
  - PRURITUS [None]
  - QUALITY OF LIFE DECREASED [None]
  - VISION BLURRED [None]
  - WALKING AID USER [None]
